FAERS Safety Report 23357163 (Version 1)
Quarter: 2024Q1

REPORT INFORMATION
  Report Type: Spontaneous
  Country: JP (occurrence: JP)
  Receive Date: 20240102
  Receipt Date: 20240102
  Transmission Date: 20240410
  Serious: Yes (Hospitalization)
  Sender: FDA-Public Use
  Company Number: JP-JNJFOC-20231275014

PATIENT
  Age: 69 Year
  Sex: Male

DRUGS (1)
  1. ITRACONAZOLE [Suspect]
     Active Substance: ITRACONAZOLE
     Indication: Bronchopulmonary aspergillosis
     Dosage: ON AN EMPTY STOMACH BETWEEN MEALS IN THE MORNING
     Route: 048

REACTIONS (3)
  - Hospitalisation [Unknown]
  - Inappropriate schedule of product administration [Unknown]
  - Off label use [Unknown]
